FAERS Safety Report 5340341-7 (Version None)
Quarter: 2007Q2

REPORT INFORMATION
  Report Type: 
  Country: None (occurrence: None)
  Receive Date: 20070405
  Receipt Date: 20070102
  Transmission Date: 20071010
  Serious: No
  Sender: FDA-Public Use
  Company Number: US200701000262

PATIENT
  Age: 31 Year
  Sex: Male

DRUGS (2)
  1. CYMBALTA [Suspect]
     Indication: DEPRESSION
     Dosage: 60 MG
     Dates: start: 20051201
  2. ADDERALL (AMFETAMINE ASPARTATE AMFETAMINE SULFATE, DEXAMFETAMINE SACCH [Concomitant]

REACTIONS (3)
  - DISTURBANCE IN ATTENTION [None]
  - DRY MOUTH [None]
  - HALLUCINATION, AUDITORY [None]
